FAERS Safety Report 10670572 (Version 2)
Quarter: 2014Q4

REPORT INFORMATION
  Report Type: Spontaneous
  Country: US (occurrence: US)
  Receive Date: 20141223
  Receipt Date: 20141223
  Transmission Date: 20150529
  Serious: Yes (Disabling)
  Sender: FDA-Public Use
  Company Number: PHEH2014US022500

PATIENT
  Age: 5 Year
  Sex: Male

DRUGS (8)
  1. FOCALIN XR [Suspect]
     Active Substance: DEXMETHYLPHENIDATE HYDROCHLORIDE
     Dosage: INCREASED THE DOSE
     Route: 048
  2. CLONIDIN [Concomitant]
     Indication: INSOMNIA
     Dosage: 0.1 MG, QD (EVERY DAY BEFOR SLEEP)
     Route: 048
  3. FOCALIN [Suspect]
     Active Substance: DEXMETHYLPHENIDATE HYDROCHLORIDE
     Dosage: 2.5 MG ( EVERY EVENING), DECREASED THE DOSE CURRENTLY TAKING NOW
     Route: 048
     Dates: end: 20141111
  4. FOCALIN [Suspect]
     Active Substance: DEXMETHYLPHENIDATE HYDROCHLORIDE
     Dosage: INCREASED THE DOSE
     Route: 048
  5. MIRALAX [Concomitant]
     Active Substance: POLYETHYLENE GLYCOL 3350
     Indication: ENCOPRESIS
     Dosage: 1 DF, QD
     Route: 048
  6. FOCALIN XR [Suspect]
     Active Substance: DEXMETHYLPHENIDATE HYDROCHLORIDE
     Dosage: 5 MG, QD (EVERY DAY BEFORE NOON)), DECREASED THE DOSE CURRENTLY TAKING NOW
     Route: 048
     Dates: end: 20141111
  7. FOCALIN [Suspect]
     Active Substance: DEXMETHYLPHENIDATE HYDROCHLORIDE
     Indication: ATTENTION DEFICIT/HYPERACTIVITY DISORDER
     Dosage: 2.5 MG, QD (EVERY EVENING)
     Route: 048
     Dates: start: 201312
  8. FOCALIN XR [Suspect]
     Active Substance: DEXMETHYLPHENIDATE HYDROCHLORIDE
     Indication: ATTENTION DEFICIT/HYPERACTIVITY DISORDER
     Dosage: 5 MG, QD (EVERY DAY BEFORE NOON)
     Route: 048
     Dates: start: 201312

REACTIONS (5)
  - Irritability [Recovering/Resolving]
  - Mental disorder [Unknown]
  - Impulsive behaviour [Recovering/Resolving]
  - Anger [Recovering/Resolving]
  - Agitation [Unknown]

NARRATIVE: CASE EVENT DATE: 20141024
